FAERS Safety Report 11674093 (Version 1)
Quarter: 2015Q4

REPORT INFORMATION
  Report Type: Spontaneous
  Country: CA (occurrence: CA)
  Receive Date: 20151028
  Receipt Date: 20151028
  Transmission Date: 20160304
  Serious: Yes (Death, Other)
  Sender: FDA-Public Use
  Company Number: CA-PURDUE PHARMA-CAN-2002-0000031

PATIENT
  Age: 13 Year
  Sex: Female
  Weight: 43.99 kg

DRUGS (4)
  1. OXYCODONE HYDROCHLORIDE. [Suspect]
     Active Substance: OXYCODONE HYDROCHLORIDE
     Indication: DRUG ABUSER
     Dosage: UNK, SEE TEXT
     Route: 065
     Dates: start: 20010626, end: 20010627
  2. MORPHINE SULFATE. [Suspect]
     Active Substance: MORPHINE SULFATE
     Indication: DRUG ABUSER
     Dosage: UNK, SEE TEXT
     Route: 065
     Dates: start: 20010626, end: 20010627
  3. AMFETAMINE [Suspect]
     Active Substance: AMPHETAMINE
     Indication: DRUG ABUSER
     Dosage: UNK, SEE TEXT
     Route: 065
     Dates: start: 20010626, end: 20010627
  4. METHYLENE DIOXYAMPHETAMINE [Concomitant]
     Active Substance: METHYLENEDIOXYMETHAMPHETAMINE
     Indication: DRUG ABUSER
     Dosage: UNK, SEE TEXT
     Route: 048
     Dates: end: 20010626

REACTIONS (4)
  - Coma [Unknown]
  - Substance abuse [Unknown]
  - Accidental overdose [Fatal]
  - Psychomotor skills impaired [Unknown]

NARRATIVE: CASE EVENT DATE: 20010626
